FAERS Safety Report 10220790 (Version 1)
Quarter: 2014Q2

REPORT INFORMATION
  Report Type: Spontaneous
  Country: US (occurrence: US)
  Receive Date: 20140606
  Receipt Date: 20140606
  Transmission Date: 20141212
  Serious: No
  Sender: FDA-Public Use
  Company Number: US-ASTRAZENECA-2014SE35956

PATIENT
  Age: 61 Year
  Sex: Female
  Weight: 77.1 kg

DRUGS (19)
  1. SYMBICORT [Suspect]
     Indication: CHRONIC OBSTRUCTIVE PULMONARY DISEASE
     Dosage: 160/4.5 MCG, 2 PUFFS BID
     Route: 055
     Dates: start: 201405, end: 201405
  2. SYMBICORT [Suspect]
     Indication: CHRONIC OBSTRUCTIVE PULMONARY DISEASE
     Dosage: ONE PUFF OUT OF THE INHALER
     Route: 055
  3. PRILOSEC [Suspect]
     Indication: GASTROOESOPHAGEAL REFLUX DISEASE
     Route: 048
     Dates: start: 20140428
  4. NEURONTIN [Concomitant]
     Dosage: 300MG NR
     Route: 048
     Dates: start: 20140421
  5. GLUCATROL XL [Concomitant]
     Indication: DIABETES MELLITUS
     Dosage: 10MG NR
     Route: 048
     Dates: start: 20140320
  6. LEXAPRO [Concomitant]
     Indication: DEPRESSION
     Dosage: 10MG NR
     Route: 048
     Dates: start: 20140421
  7. CYMBALTA [Concomitant]
     Indication: DEPRESSION
     Dosage: 60MG NR
     Route: 048
     Dates: start: 20131223
  8. REGLAN [Concomitant]
     Indication: GASTROOESOPHAGEAL REFLUX DISEASE
     Dosage: 10MG NR
     Route: 048
     Dates: start: 20110621
  9. FENOFIBRATE [Concomitant]
     Dosage: 125MG NR
     Route: 048
     Dates: start: 20130909
  10. ASPIRIN [Concomitant]
     Indication: CARDIAC DISORDER
     Dosage: 81MG NR
     Route: 048
  11. HYZAAR [Concomitant]
     Dosage: 100-25MG ONCE DAILY
     Route: 048
     Dates: start: 20140504
  12. FUROSEMIDE [Concomitant]
     Indication: FLUID RETENTION
     Route: 048
     Dates: start: 20120813
  13. METFORMIN [Concomitant]
     Indication: DIABETES MELLITUS
     Route: 048
     Dates: start: 2013
  14. HYDROXYZINE [Concomitant]
     Indication: NEUROPATHY PERIPHERAL
     Route: 048
     Dates: start: 201310
  15. LYRICA [Concomitant]
     Route: 048
  16. KLOR-CON [Concomitant]
     Route: 048
     Dates: start: 20131223
  17. CORIG [Concomitant]
     Route: 048
     Dates: start: 20140320
  18. CALCIUM [Concomitant]
     Indication: CALCIUM DEFICIENCY
     Route: 048
     Dates: start: 20140320
  19. ADVAIR [Concomitant]
     Dosage: INHALER

REACTIONS (2)
  - Dyspnoea [Unknown]
  - Drug dose omission [Unknown]
